FAERS Safety Report 14111067 (Version 1)
Quarter: 2017Q4

REPORT INFORMATION
  Report Type: Spontaneous
  Country: US (occurrence: US)
  Receive Date: 20171020
  Receipt Date: 20171020
  Transmission Date: 20180321
  Serious: No
  Sender: FDA-Public Use
  Company Number: US-INCYTE CORPORATION-2017IN008498

PATIENT

DRUGS (1)
  1. JAKAFI [Suspect]
     Active Substance: RUXOLITINIB
     Indication: CHRONIC KIDNEY DISEASE
     Dosage: 5 MG, BID (FOR 3 WEEKS)
     Route: 048

REACTIONS (2)
  - Red blood cell count decreased [Unknown]
  - Off label use [Unknown]
